FAERS Safety Report 9543292 (Version 2)
Quarter: 2013Q4

REPORT INFORMATION
  Report Type: Report from Study
  Country: IT (occurrence: IT)
  Receive Date: 20130923
  Receipt Date: 20131202
  Transmission Date: 20140711
  Serious: Yes (Hospitalization, Disabling)
  Sender: FDA-Public Use
  Company Number: PHHO2013IT011988

PATIENT
  Sex: 0

DRUGS (4)
  1. AMN107 [Suspect]
     Indication: CHRONIC MYELOID LEUKAEMIA
     Dosage: UNK
     Route: 048
     Dates: start: 20120924, end: 20130828
  2. GLIVEC [Concomitant]
     Indication: CHRONIC MYELOID LEUKAEMIA
     Dosage: 400 MG, UNK
     Dates: start: 20130903
  3. CARDIOASPIRINA [Concomitant]
     Indication: HYPERTENSION
     Dosage: 100 MG, DAY
     Route: 048
     Dates: start: 20120121
  4. TORVAST [Concomitant]
     Indication: HYPERTRIGLYCERIDAEMIA
     Dosage: 100 MG,DAY
     Route: 048
     Dates: start: 20130625

REACTIONS (2)
  - Transient ischaemic attack [Recovered/Resolved]
  - Peripheral arterial occlusive disease [Recovered/Resolved with Sequelae]
